FAERS Safety Report 10162579 (Version 3)
Quarter: 2014Q3

REPORT INFORMATION
  Report Type: Spontaneous
  Country: DE (occurrence: DE)
  Receive Date: 20140509
  Receipt Date: 20140828
  Transmission Date: 20150326
  Serious: Yes (Other)
  Sender: FDA-Public Use
  Company Number: PHHY2014DE056116

PATIENT
  Age: 76 Year
  Sex: Male
  Weight: 90 kg

DRUGS (4)
  1. GLIVEC [Suspect]
     Active Substance: IMATINIB MESYLATE
     Indication: CHRONIC MYELOID LEUKAEMIA
     Dosage: 400 MG, DAILY
     Route: 048
     Dates: start: 200211
  2. BISOPROLOL [Concomitant]
     Active Substance: BISOPROLOL
     Dosage: 1 DF, DAILY
     Route: 048
  3. CALCICARE D3 [Concomitant]
     Dosage: 1 DF, DAILY
     Route: 048
  4. PANTOPRAZOLE [Concomitant]
     Active Substance: PANTOPRAZOLE SODIUM
     Dosage: 1 DF, DAILY
     Route: 048

REACTIONS (5)
  - Pancreatic fistula [Recovered/Resolved]
  - Colorectal adenocarcinoma [Unknown]
  - Second primary malignancy [Unknown]
  - Post procedural fistula [Recovered/Resolved]
  - Papilla of Vater stenosis [Unknown]

NARRATIVE: CASE EVENT DATE: 201403
